FAERS Safety Report 7808185-1 (Version None)
Quarter: 2011Q4

REPORT INFORMATION
  Report Type: 
  Country: None (occurrence: None)
  Receive Date: 20111011
  Receipt Date: 20111004
  Transmission Date: 20120403
  Serious: Yes (Hospitalization, Other)
  Sender: FDA-Public Use
  Company Number: DE-GILEAD-2011-0044633

PATIENT

DRUGS (2)
  1. CERTICAN [Suspect]
  2. VIREAD [Suspect]
     Indication: PRODUCT USED FOR UNKNOWN INDICATION
     Dosage: 245 MG, QD

REACTIONS (3)
  - CARDIAC DISORDER [None]
  - POLYNEUROPATHY [None]
  - DIARRHOEA [None]
